FAERS Safety Report 12081484 (Version 1)
Quarter: 2016Q1

REPORT INFORMATION
  Report Type: Spontaneous
  Country: JP (occurrence: JP)
  Receive Date: 20160216
  Receipt Date: 20160216
  Transmission Date: 20160526
  Serious: Yes (Hospitalization)
  Sender: FDA-Public Use
  Company Number: JP-UNICHEM LABORATORIES LIMITED-UCM201602-000014

PATIENT
  Age: 70 Year
  Sex: Male

DRUGS (4)
  1. MEMANTINE. [Suspect]
     Active Substance: MEMANTINE
  2. OXYPERTINE [Concomitant]
     Active Substance: OXYPERTINE
  3. MEMANTINE. [Suspect]
     Active Substance: MEMANTINE
  4. HALOPERIDOL. [Concomitant]
     Active Substance: HALOPERIDOL

REACTIONS (1)
  - Electrocardiogram QT prolonged [Recovered/Resolved]
